FAERS Safety Report 5480261-0 (Version None)
Quarter: 2007Q4

REPORT INFORMATION
  Report Type: 
  Country: None (occurrence: None)
  Receive Date: 20071003
  Receipt Date: 20070924
  Transmission Date: 20080405
  Serious: Yes (Death)
  Sender: FDA-Public Use
  Company Number: CIP07001414

PATIENT
  Age: 87 Year
  Sex: Female

DRUGS (4)
  1. ACTONEL [Suspect]
     Indication: OSTEOPOROSIS
     Dosage: 35 MG ONCE WEEKLY, ORAL
     Route: 048
     Dates: start: 20030601, end: 20061001
  2. ENDONE(OXYCODONE HYDROCHLORIDE) [Concomitant]
  3. ARICEPT [Concomitant]
  4. OXAZEPAM [Concomitant]

REACTIONS (2)
  - HAEMATEMESIS [None]
  - PNEUMONIA [None]
